FAERS Safety Report 9916846 (Version 1)
Quarter: 2014Q1

REPORT INFORMATION
  Report Type: Spontaneous
  Country: IT (occurrence: IT)
  Receive Date: 20140221
  Receipt Date: 20140221
  Transmission Date: 20141002
  Serious: Yes (Other)
  Sender: FDA-Public Use
  Company Number: IT-WATSON-2014-02720

PATIENT
  Age: 27 Year
  Sex: Female

DRUGS (4)
  1. DIAZEPAM (UNKNOWN) [Suspect]
     Indication: PRODUCT USED FOR UNKNOWN INDICATION
     Dosage: 150 MG, TOTAL
     Route: 048
     Dates: start: 20131226, end: 20131226
  2. DEXAMETHASONE (UNKNOWN) [Suspect]
     Indication: PRODUCT USED FOR UNKNOWN INDICATION
     Dosage: 1 DF, TOTAL
     Dates: start: 20131226, end: 20131226
  3. CEPHALEXIN                         /00145501/ [Concomitant]
     Indication: PRODUCT USED FOR UNKNOWN INDICATION
     Dosage: UNK
  4. AMPICILLINA BIOPHARMA [Concomitant]
     Indication: PRODUCT USED FOR UNKNOWN INDICATION
     Dosage: UNK

REACTIONS (2)
  - Sopor [Recovering/Resolving]
  - Drug abuse [Recovering/Resolving]
